FAERS Safety Report 7146336-5 (Version None)
Quarter: 2010Q4

REPORT INFORMATION
  Report Type: 
  Country: None (occurrence: None)
  Receive Date: 20101208
  Receipt Date: 20101130
  Transmission Date: 20110411
  Serious: Yes (Congenital Anomaly, Other)
  Sender: FDA-Public Use
  Company Number: GB-TEVA-258321ISR

PATIENT
  Sex: Female
  Weight: 3.2 kg

DRUGS (5)
  1. PROPRANOLOL [Suspect]
     Route: 064
  2. VENLAFAXINE [Suspect]
     Route: 064
  3. ACAMPROSATE [Suspect]
     Route: 064
     Dates: start: 20100301, end: 20100701
  4. THIAMINE, VITAMIN B SUBSTANCES [Suspect]
     Route: 064
     Dates: start: 20100301
  5. VITAMIN B [Suspect]

REACTIONS (2)
  - DRUG EXPOSURE DURING PREGNANCY [None]
  - FOETAL ALCOHOL SYNDROME [None]
